FAERS Safety Report 4364585-6 (Version None)
Quarter: 2004Q2

REPORT INFORMATION
  Report Type: 
  Country: None (occurrence: None)
  Receive Date: 20040525
  Receipt Date: 20040511
  Transmission Date: 20050107
  Serious: Yes (Hospitalization)
  Sender: FDA-Public Use
  Company Number: WAES 0311DEU00090

PATIENT
  Age: 67 Year
  Sex: Female

DRUGS (4)
  1. COZAAR [Suspect]
     Indication: CARDIAC FAILURE CONGESTIVE
     Dosage: PO
     Route: 048
     Dates: start: 20020422, end: 20030812
  2. ACETYLDIGOXIN [Concomitant]
  3. CARVEDILOL [Concomitant]
  4. FUROSEMIDE [Concomitant]

REACTIONS (15)
  - ACQUIRED DIAPHRAGMATIC EVENTRATION [None]
  - ANAEMIA MACROCYTIC [None]
  - ASPIRATION BONE MARROW ABNORMAL [None]
  - CARDIAC FAILURE [None]
  - CONDITION AGGRAVATED [None]
  - GASTRIC HAEMORRHAGE [None]
  - HELICOBACTER GASTRITIS [None]
  - HEPATIC CONGESTION [None]
  - HEPATOSPLENOMEGALY [None]
  - IRON METABOLISM DISORDER [None]
  - PETECHIAE [None]
  - RENAL FAILURE [None]
  - SINUS TACHYCARDIA [None]
  - VENTRICULAR EXTRASYSTOLES [None]
  - VENTRICULAR HYPOKINESIA [None]
